FAERS Safety Report 23549797 (Version 2)
Quarter: 2024Q1

REPORT INFORMATION
  Report Type: Spontaneous
  Country: PT (occurrence: PT)
  Receive Date: 20240221
  Receipt Date: 20240314
  Transmission Date: 20240409
  Serious: Yes (Disabling)
  Sender: FDA-Public Use
  Company Number: None

PATIENT
  Age: 60 Year
  Sex: Female
  Weight: 106 kg

DRUGS (9)
  1. FLUOXETINE HYDROCHLORIDE [Interacting]
     Active Substance: FLUOXETINE HYDROCHLORIDE
     Indication: Depressive symptom
     Dosage: 20 MG, DAILY
     Route: 048
     Dates: start: 20231106, end: 20231206
  2. FLUOXETINE HYDROCHLORIDE [Interacting]
     Active Substance: FLUOXETINE HYDROCHLORIDE
     Dosage: 40 MG, DAILY
     Route: 065
     Dates: start: 20231207, end: 20240204
  3. FLUOXETINE HYDROCHLORIDE [Interacting]
     Active Substance: FLUOXETINE HYDROCHLORIDE
     Dosage: 20 MG, DAILY
     Route: 065
  4. CARIPRAZINE [Interacting]
     Active Substance: CARIPRAZINE
     Indication: Psychotic disorder
     Dosage: 1 VEZ DIA
     Route: 065
     Dates: start: 20231106, end: 20240204
  5. CARIPRAZINE [Interacting]
     Active Substance: CARIPRAZINE
     Dosage: 4.5 MG
     Route: 065
  6. CARIPRAZINE [Interacting]
     Active Substance: CARIPRAZINE
     Dosage: 3 MG, UNKNOWN
     Route: 065
  7. PALIPERIDONE [Concomitant]
     Active Substance: PALIPERIDONE
     Indication: Product used for unknown indication
     Dosage: 150 MG, MONTHLY (1/M)
     Route: 030
  8. METHIMAZOLE [Concomitant]
     Active Substance: METHIMAZOLE
     Indication: Product used for unknown indication
  9. BISOPROLOL [Concomitant]
     Active Substance: BISOPROLOL\BISOPROLOL FUMARATE
     Indication: Product used for unknown indication

REACTIONS (4)
  - Drug interaction [Unknown]
  - Insomnia [Recovered/Resolved]
  - Suicidal ideation [Recovered/Resolved]
  - Akathisia [Recovered/Resolved]

NARRATIVE: CASE EVENT DATE: 20240108
